FAERS Safety Report 6285318-2 (Version None)
Quarter: 2009Q3

REPORT INFORMATION
  Report Type: 
  Country: None (occurrence: None)
  Receive Date: 20090723
  Receipt Date: 20090716
  Transmission Date: 20100115
  Serious: Yes (Hospitalization)
  Sender: FDA-Public Use
  Company Number: GXKR2009DE08163

PATIENT
  Age: 69 Year
  Sex: Male
  Weight: 97 kg

DRUGS (3)
  1. METOHEXAL SUCC (NGX) (METOPROLOL) EXTENDED RELEASE TABLET, 47.5MG [Suspect]
     Indication: TACHYARRHYTHMIA
     Dosage: 47.5 MG, BID, ORAL
     Route: 048
     Dates: start: 20090702, end: 20090707
  2. ALLOPURINOL (NGX) (ALLOPURINOL) TABLE [Concomitant]
  3. RAMIPRIL COMP (HYDROCHLOROTHIAZIDE, RAMIPRIL) TABLET [Concomitant]

REACTIONS (1)
  - HAEMATOMA [None]
